FAERS Safety Report 9629637 (Version 1)
Quarter: 2013Q4

REPORT INFORMATION
  Report Type: Spontaneous
  Country: AR (occurrence: AR)
  Receive Date: 20131017
  Receipt Date: 20131017
  Transmission Date: 20140711
  Serious: Yes (Other)
  Sender: FDA-Public Use
  Company Number: AR-ACTELION-A-CH2013-89985

PATIENT
  Age: 36 Year
  Sex: Male

DRUGS (2)
  1. ZAVESCA [Suspect]
     Indication: NIEMANN-PICK DISEASE
     Dosage: 400 MG, QD
     Route: 048
     Dates: start: 201308
  2. LEVETIRACETAM [Concomitant]
     Dosage: 1000 MG, BID

REACTIONS (1)
  - Partial seizures [Unknown]
